FAERS Safety Report 23716376 (Version 1)
Quarter: 2024Q2

REPORT INFORMATION
  Report Type: Spontaneous
  Country: US (occurrence: US)
  Receive Date: 20240408
  Receipt Date: 20240408
  Transmission Date: 20240716
  Serious: No
  Sender: FDA-Public Use
  Company Number: US-UCBSA-2023023714

PATIENT
  Age: 67 Year
  Sex: Male

DRUGS (2)
  1. BRIVIACT [Suspect]
     Active Substance: BRIVARACETAM
     Indication: Epilepsy
     Dosage: 50 MILLIGRAM
     Dates: start: 20220505
  2. BRIVIACT [Suspect]
     Active Substance: BRIVARACETAM
     Dosage: 10 MILLIGRAM, 2X/DAY (BID)
     Dates: start: 20230503

REACTIONS (2)
  - Product availability issue [Unknown]
  - Therapy interrupted [Unknown]

NARRATIVE: CASE EVENT DATE: 20230503
